FAERS Safety Report 17530861 (Version 1)
Quarter: 2020Q1

REPORT INFORMATION
  Report Type: Spontaneous
  Country: DE (occurrence: DE)
  Receive Date: 20200312
  Receipt Date: 20200312
  Transmission Date: 20200409
  Serious: Yes (Other)
  Sender: FDA-Public Use
  Company Number: DE-TEVA-2020-DE-1197966

PATIENT
  Age: 55 Year
  Sex: Male

DRUGS (1)
  1. TADALAFIL ABZ 5 MG FILMTABLETTEN [Suspect]
     Active Substance: TADALAFIL
     Dosage: SUBMITTED ON 23 JANUARY 2020?1 TABLET PER APPLICATION, 6 TABLETS IN TOTAL
     Dates: start: 2020

REACTIONS (2)
  - Haematochezia [Recovering/Resolving]
  - Dyspepsia [Recovering/Resolving]

NARRATIVE: CASE EVENT DATE: 2020
